FAERS Safety Report 8471069-2 (Version None)
Quarter: 2012Q2

REPORT INFORMATION
  Report Type: 
  Country: None (occurrence: None)
  Receive Date: 20120627
  Receipt Date: 20120615
  Transmission Date: 20120825
  Serious: Yes (Hospitalization)
  Sender: FDA-Public Use
  Company Number: US-SANOFI-AVENTIS-2012SA043352

PATIENT
  Age: 53 Year
  Sex: Male

DRUGS (9)
  1. SAW PALMETTO [Concomitant]
     Dates: start: 20110801
  2. IBUPROFEN (ADVIL) [Concomitant]
     Dates: start: 20090101
  3. ALL OTHER THERAPEUTIC PRODUCTS [Concomitant]
     Dates: start: 20110101
  4. CYCLOBENZAPRINE [Concomitant]
     Dates: start: 20080101
  5. BLINDED THERAPY [Suspect]
     Indication: MULTIPLE SCLEROSIS
     Dates: start: 20120305, end: 20120412
  6. TALWIN [Suspect]
     Indication: BACK PAIN
     Dates: start: 20120510
  7. IMMUNOSUPPRESSIVE AGENTS [Concomitant]
     Dates: start: 20100801
  8. ALL OTHER THERAPEUTIC PRODUCTS [Suspect]
     Indication: MULTIPLE SCLEROSIS
  9. EFFEXOR [Concomitant]
     Dates: start: 20120203

REACTIONS (1)
  - TRANSAMINASES INCREASED [None]
